FAERS Safety Report 9528066 (Version 1)
Quarter: 2013Q3

REPORT INFORMATION
  Report Type: Spontaneous
  Country: FR (occurrence: FR)
  Receive Date: 20130917
  Receipt Date: 20130917
  Transmission Date: 20140515
  Serious: Yes (Other)
  Sender: FDA-Public Use
  Company Number: FR-ASTRAZENECA-2013SE68463

PATIENT
  Age: 3596 Week
  Sex: Male

DRUGS (3)
  1. CRESTOR [Suspect]
     Indication: DYSLIPIDAEMIA
     Route: 048
     Dates: start: 201012
  2. PROZAC [Concomitant]
  3. PLAVIX [Concomitant]

REACTIONS (2)
  - Squamous cell carcinoma [Unknown]
  - Muscle fatigue [Not Recovered/Not Resolved]
